FAERS Safety Report 19358912 (Version 1)
Quarter: 2021Q2

REPORT INFORMATION
  Report Type: Report from Study
  Country: ES (occurrence: ES)
  Receive Date: 20210601
  Receipt Date: 20210601
  Transmission Date: 20210717
  Serious: Yes (Other)
  Sender: FDA-Public Use
  Company Number: PT-SUNOVION-2021SUN002041

PATIENT

DRUGS (1)
  1. ZEBINIX [Suspect]
     Active Substance: ESLICARBAZEPINE ACETATE
     Indication: EPILEPSY
     Dosage: UNKNOWN
     Route: 048

REACTIONS (6)
  - Muscle twitching [Unknown]
  - Disorientation [Unknown]
  - Tonic clonic movements [Unknown]
  - Suicidal ideation [Unknown]
  - Confusional state [Unknown]
  - Drug ineffective [Unknown]

NARRATIVE: CASE EVENT DATE: 2021
